FAERS Safety Report 5170473-8 (Version None)
Quarter: 2006Q4

REPORT INFORMATION
  Report Type: 
  Country: None (occurrence: None)
  Receive Date: 20061205
  Receipt Date: 20061120
  Transmission Date: 20070319
  Serious: Yes (Hospitalization, Disabling, Other)
  Sender: FDA-Public Use
  Company Number: 2006142374

PATIENT
  Age: 42 Year
  Sex: Female
  Weight: 95.2554 kg

DRUGS (1)
  1. DEPO-PROVERA [Suspect]
     Indication: MENORRHAGIA
     Dosage: 150 MG (150 MG, FIRST INJECTION, EVERY 12 WEEKS), INTRAMUSCULAR
     Route: 030
     Dates: start: 20050501, end: 20050501

REACTIONS (9)
  - ABDOMINAL PAIN [None]
  - ANXIETY [None]
  - CLOSTRIDIAL INFECTION [None]
  - DIARRHOEA [None]
  - FATIGUE [None]
  - GASTROINTESTINAL DISORDER [None]
  - PYREXIA [None]
  - RECTAL HAEMORRHAGE [None]
  - URINARY TRACT INFECTION [None]
